FAERS Safety Report 7146352-3 (Version None)
Quarter: 2010Q4

REPORT INFORMATION
  Report Type: 
  Country: None (occurrence: None)
  Receive Date: 20101208
  Receipt Date: 20101203
  Transmission Date: 20110411
  Serious: Yes (Hospitalization, Other)
  Sender: FDA-Public Use
  Company Number: US-ROXANE LABORATORIES, INC.-2010-RO-01572RO

PATIENT
  Age: 52 Year
  Sex: Female

DRUGS (1)
  1. IMIPRAMINE PAMOATE [Suspect]
     Dosage: 6000 MG

REACTIONS (5)
  - ATRIOVENTRICULAR BLOCK COMPLETE [None]
  - CARDIOTOXICITY [None]
  - CONVULSION [None]
  - DRUG TOXICITY [None]
  - VENTRICULAR TACHYCARDIA [None]
